FAERS Safety Report 6743314-2 (Version None)
Quarter: 2010Q2

REPORT INFORMATION
  Report Type: 
  Country: None (occurrence: None)
  Receive Date: 20100527
  Receipt Date: 20100521
  Transmission Date: 20101027
  Serious: Yes (Death)
  Sender: FDA-Public Use
  Company Number: MX-BRISTOL-MYERS SQUIBB COMPANY-15055551

PATIENT
  Age: 58 Year
  Sex: Male

DRUGS (4)
  1. DASATINIB [Suspect]
     Indication: CHRONIC MYELOID LEUKAEMIA
     Route: 048
     Dates: start: 20060308, end: 20090509
  2. ETOPOSIDE [Suspect]
     Dosage: DAY 1,2,3
  3. IDARUBICIN HCL [Suspect]
     Dosage: DAY 1,2,3
  4. CYTARABINE [Suspect]
     Dosage: DAY 1,2,3

REACTIONS (3)
  - BONE MARROW FAILURE [None]
  - PNEUMONIA [None]
  - SEPTIC SHOCK [None]
